FAERS Safety Report 21590623 (Version 2)
Quarter: 2022Q4

REPORT INFORMATION
  Report Type: Spontaneous
  Country: US (occurrence: US)
  Receive Date: 20221114
  Receipt Date: 20221212
  Transmission Date: 20230112
  Serious: Yes (Other)
  Sender: FDA-Public Use
  Company Number: US-BRISTOL-MYERS SQUIBB COMPANY-2022-135746

PATIENT
  Age: 95 Year
  Sex: Female

DRUGS (1)
  1. REVLIMID [Suspect]
     Active Substance: LENALIDOMIDE
     Indication: Myelodysplastic syndrome
     Dosage: TAKE 1 CAPSULE BY MOUTH TWICE A WEEK (ON MONDAY AND THURSDAYS.
     Route: 048
     Dates: start: 20210512

REACTIONS (2)
  - Sciatica [Unknown]
  - Off label use [Unknown]

NARRATIVE: CASE EVENT DATE: 20210512
